FAERS Safety Report 9337789 (Version 1)
Quarter: 2013Q2

REPORT INFORMATION
  Report Type: Spontaneous
  Country: CN (occurrence: CN)
  Receive Date: 20130607
  Receipt Date: 20130607
  Transmission Date: 20140414
  Serious: Yes (Life-Threatening)
  Sender: FDA-Public Use
  Company Number: CN-ASTRAZENECA-2013SE40289

PATIENT
  Age: 13149 Day
  Sex: Female
  Weight: 48 kg

DRUGS (3)
  1. PROPOFOL [Suspect]
     Indication: INDUCTION OF ANAESTHESIA
     Route: 042
     Dates: start: 20121105, end: 20121105
  2. PROPOFOL [Suspect]
     Indication: INDUCTION OF ANAESTHESIA
     Route: 042
     Dates: start: 20121105, end: 20121105
  3. SUFENTANIL CITRATE [Concomitant]
     Indication: ANAESTHESIA
     Route: 042
     Dates: start: 20121105, end: 20121105

REACTIONS (2)
  - Cardiac arrest [Recovering/Resolving]
  - Respiratory arrest [Recovering/Resolving]
